FAERS Safety Report 5678720-0 (Version None)
Quarter: 2008Q1

REPORT INFORMATION
  Report Type: 
  Country: None (occurrence: None)
  Receive Date: 20080321
  Receipt Date: 20080305
  Transmission Date: 20080703
  Serious: No
  Sender: FDA-Public Use
  Company Number: 002#1#2008-00107

PATIENT
  Age: 77 Year
  Sex: Female
  Weight: 62.5964 kg

DRUGS (5)
  1. NEUPRO [Suspect]
     Indication: PARKINSON'S DISEASE
     Dosage: 4 MG/24H, 1 IN 1 D, TRANSDERMAL; 2MG/24H, 1 IN 1 D, TRANSDERMAL
     Route: 062
     Dates: start: 20071201, end: 20080114
  2. NEUPRO [Suspect]
     Indication: PARKINSON'S DISEASE
     Dosage: 4 MG/24H, 1 IN 1 D, TRANSDERMAL; 2MG/24H, 1 IN 1 D, TRANSDERMAL
     Route: 062
     Dates: start: 20080115, end: 20080301
  3. KLOR-CON [Concomitant]
  4. HYDROCHLOROTHIAZIDE [Concomitant]
  5. SIMVASTATIN [Concomitant]

REACTIONS (3)
  - APPLICATION SITE PRURITUS [None]
  - APPLICATION SITE RASH [None]
  - DERMATITIS CONTACT [None]
